FAERS Safety Report 4859650-0 (Version None)
Quarter: 2005Q4

REPORT INFORMATION
  Report Type: 
  Country: None (occurrence: None)
  Receive Date: 20051216
  Receipt Date: 20051206
  Transmission Date: 20060501
  Serious: Yes (Death, Hospitalization)
  Sender: FDA-Public Use
  Company Number: DEU-2005-0001575

PATIENT
  Age: 28 Year
  Sex: Male
  Weight: 70 kg

DRUGS (6)
  1. OXYCODONE HCL [Suspect]
     Indication: NEURALGIA
     Dosage: SEE IMAGE
     Route: 048
     Dates: start: 20001207, end: 20021014
  2. OXYCODONE HCL [Suspect]
     Indication: NEURALGIA
     Dosage: SEE IMAGE
     Route: 048
     Dates: start: 20021015, end: 20030326
  3. OXYCODONE HCL [Suspect]
     Indication: NEURALGIA
     Dosage: SEE IMAGE
     Route: 048
     Dates: start: 20030327, end: 20040922
  4. OXYCODONE HCL [Suspect]
     Indication: NEURALGIA
     Dosage: SEE IMAGE
     Route: 048
     Dates: start: 20040923
  5. AMITRIPTYLINE [Concomitant]
  6. KATADOLON (FLUPIRTINE MALEATE) [Concomitant]

REACTIONS (2)
  - ILEUS PARALYTIC [None]
  - PERITONITIS [None]
